FAERS Safety Report 12176457 (Version 1)
Quarter: 2016Q1

REPORT INFORMATION
  Report Type: Spontaneous
  Country: US (occurrence: US)
  Receive Date: 20160314
  Receipt Date: 20160314
  Transmission Date: 20160526
  Serious: No
  Sender: FDA-Public Use
  Company Number: US-AKORN PHARMACEUTICALS-2015AKN00344

PATIENT
  Age: 34 Year
  Sex: Female
  Weight: 83.5 kg

DRUGS (5)
  1. MYORISAN [Suspect]
     Active Substance: ISOTRETINOIN
     Dosage: 80 MG, 1X/DAY
     Route: 048
     Dates: start: 20150302, end: 201504
  2. MIRENA [Concomitant]
     Active Substance: LEVONORGESTREL
     Route: 015
  3. MYORISAN [Suspect]
     Active Substance: ISOTRETINOIN
     Dosage: 80 MG, 1X/DAY
     Route: 048
     Dates: start: 201504, end: 20150506
  4. MYORISAN [Suspect]
     Active Substance: ISOTRETINOIN
     Dosage: 40 MG, 1X/DAY
     Route: 048
     Dates: start: 201504, end: 201504
  5. MYORISAN [Suspect]
     Active Substance: ISOTRETINOIN
     Dosage: 40 MG, 1X/DAY
     Route: 048
     Dates: start: 20150507, end: 20150509

REACTIONS (11)
  - Dry eye [Recovered/Resolved]
  - Skin fissures [Recovered/Resolved]
  - Eye pain [Recovered/Resolved]
  - Superficial injury of eye [Recovered/Resolved]
  - Asteatosis [Recovered/Resolved]
  - Vision blurred [Recovered/Resolved]
  - Arthralgia [Recovered/Resolved]
  - Keratopathy [Recovered/Resolved]
  - Nasal dryness [Recovered/Resolved]
  - Cheilitis [Recovered/Resolved]
  - Arthropathy [Recovered/Resolved]

NARRATIVE: CASE EVENT DATE: 201504
